FAERS Safety Report 20903336 (Version 2)
Quarter: 2022Q3

REPORT INFORMATION
  Report Type: Spontaneous
  Country: US (occurrence: None)
  Receive Date: 20220601
  Receipt Date: 20220704
  Transmission Date: 20221026
  Serious: No
  Sender: FDA-Public Use
  Company Number: 2022A187845

PATIENT
  Sex: Female
  Weight: 81.6 kg

DRUGS (1)
  1. BUDESONIDE\FORMOTEROL\GLYCOPYRRONIUM [Suspect]
     Active Substance: BUDESONIDE\FORMOTEROL\GLYCOPYRRONIUM
     Indication: Asthma
     Dosage: 160/9/4.8MCG
     Route: 055

REACTIONS (5)
  - Device delivery system issue [Unknown]
  - Rash [Unknown]
  - Psoriatic arthropathy [Not Recovered/Not Resolved]
  - Asthma [Unknown]
  - Device ineffective [Unknown]
